FAERS Safety Report 14540978 (Version 4)
Quarter: 2018Q2

REPORT INFORMATION
  Report Type: Spontaneous
  Country: US (occurrence: US)
  Receive Date: 20180216
  Receipt Date: 20180514
  Transmission Date: 20180711
  Serious: Yes (Hospitalization, Other)
  Sender: FDA-Public Use
  Company Number: US-GLAXOSMITHKLINE-US2018GSK025917

PATIENT
  Age: 56 Year
  Sex: Female

DRUGS (6)
  1. FLOLAN [Suspect]
     Active Substance: EPOPROSTENOL SODIUM
     Indication: PULMONARY ARTERIAL HYPERTENSION
     Dosage: 23 DF, CO
     Dates: start: 20160624
  2. FLOLAN [Suspect]
     Active Substance: EPOPROSTENOL SODIUM
     Dosage: UNK
     Dates: start: 20161205
  3. FLOLAN [Suspect]
     Active Substance: EPOPROSTENOL SODIUM
     Indication: PULMONARY ARTERIAL HYPERTENSION
     Dosage: UNK
     Dates: start: 20161205
  4. ADEMPAS [Concomitant]
     Active Substance: RIOCIGUAT
  5. FLOLAN [Suspect]
     Active Substance: EPOPROSTENOL SODIUM
     Dosage: 23 UNK, UNK
     Dates: start: 20160624
  6. VELETRI [Concomitant]
     Active Substance: EPOPROSTENOL

REACTIONS (6)
  - Pneumonia [Unknown]
  - Hypoxia [Unknown]
  - Infection [Unknown]
  - Pyrexia [Unknown]
  - Pleural effusion [Unknown]
  - Fluid overload [Unknown]

NARRATIVE: CASE EVENT DATE: 20180212
